FAERS Safety Report 14612701 (Version 3)
Quarter: 2018Q2

REPORT INFORMATION
  Report Type: Other
  Country: US (occurrence: US)
  Receive Date: 20180308
  Receipt Date: 20180625
  Transmission Date: 20180711
  Serious: Yes (Hospitalization, Disabling, Other)
  Sender: FDA-Public Use
  Company Number: US-ACORDA-ACO_147399_2018

PATIENT
  Age: 62 Year
  Sex: Female

DRUGS (7)
  1. AMPYRA [Suspect]
     Active Substance: DALFAMPRIDINE
     Indication: MULTIPLE SCLEROSIS
     Dosage: 10 MG, BID
     Route: 048
     Dates: start: 2013, end: 201709
  2. AMPYRA [Suspect]
     Active Substance: DALFAMPRIDINE
     Indication: GAIT DISTURBANCE
     Dosage: 10 MG, BID
     Route: 048
     Dates: start: 201711, end: 201801
  3. TYSABRI [Suspect]
     Active Substance: NATALIZUMAB
     Dosage: UNK
     Route: 065
     Dates: start: 20161109
  4. TYSABRI [Suspect]
     Active Substance: NATALIZUMAB
     Indication: MULTIPLE SCLEROSIS
     Dosage: 300 MG, EVERY 4 WEEKS (INFUSED OVER 1 HOUR)
     Route: 042
     Dates: start: 201002
  5. GABAPENTIN. [Concomitant]
     Active Substance: GABAPENTIN
  6. AMPYRA [Suspect]
     Active Substance: DALFAMPRIDINE
     Dosage: 10 MG, BID
     Route: 048
     Dates: start: 201803
  7. ELIQUIS [Concomitant]
     Active Substance: APIXABAN

REACTIONS (23)
  - Skin ulcer [Recovered/Resolved]
  - Burning sensation [Recovering/Resolving]
  - Therapeutic response unexpected [Unknown]
  - Hypotension [Unknown]
  - Acute kidney injury [Recovered/Resolved]
  - Peripheral swelling [Not Recovered/Not Resolved]
  - Pruritus [Recovering/Resolving]
  - Muscle atrophy [Recovering/Resolving]
  - Speech disorder [Unknown]
  - Gait inability [Unknown]
  - Staphylococcal infection [Recovered/Resolved]
  - Central nervous system lesion [Recovering/Resolving]
  - Skin fissures [Recovered/Resolved]
  - Progressive relapsing multiple sclerosis [Unknown]
  - Sepsis [Recovered/Resolved]
  - Atrial fibrillation [Unknown]
  - Pain [Recovering/Resolving]
  - Headache [Recovered/Resolved]
  - Fall [Unknown]
  - Rhabdomyolysis [Recovered/Resolved]
  - Loss of consciousness [Recovered/Resolved]
  - Brain oedema [Recovering/Resolving]
  - Coma [Recovered/Resolved]

NARRATIVE: CASE EVENT DATE: 201709
